FAERS Safety Report 8597939-2 (Version None)
Quarter: 2012Q3

REPORT INFORMATION
  Report Type: 
  Country: None (occurrence: None)
  Receive Date: 20120816
  Receipt Date: 20120808
  Transmission Date: 20120928
  Serious: Yes (Other)
  Sender: FDA-Public Use
  Company Number: US-BAYER-2012-081517

PATIENT
  Age: 37 Year
  Sex: Female

DRUGS (2)
  1. MIRENA [Suspect]
     Indication: MENORRHAGIA
     Dosage: 20 MCG/24HR, CONT
     Route: 015
     Dates: start: 20100201
  2. MIRENA [Suspect]
     Indication: CONTRACEPTION

REACTIONS (12)
  - VAGINITIS BACTERIAL [None]
  - MIGRAINE [None]
  - FUNGAL INFECTION [None]
  - PRURITUS GENERALISED [None]
  - ACNE [None]
  - VAGINAL DISCHARGE [None]
  - ANXIETY [None]
  - OVARIAN CYST [None]
  - DEPRESSION [None]
  - BACK PAIN [None]
  - ALOPECIA [None]
  - UTERINE LEIOMYOMA [None]
